FAERS Safety Report 8313270-4 (Version None)
Quarter: 2012Q2

REPORT INFORMATION
  Report Type: 
  Country: None (occurrence: None)
  Receive Date: 20120426
  Receipt Date: 20120415
  Transmission Date: 20120825
  Serious: No
  Sender: FDA-Public Use
  Company Number: US-NOVOPROD-346275

PATIENT
  Age: 55 Year
  Sex: Male
  Weight: 113.38 kg

DRUGS (1)
  1. LIRAGLUTIDE FLEXPEN [Suspect]
     Indication: TYPE 2 DIABETES MELLITUS
     Dosage: 1.8 MG, QD
     Route: 058
     Dates: start: 20120216, end: 20120229

REACTIONS (1)
  - GASTROINTESTINAL HAEMORRHAGE [None]
